FAERS Safety Report 6574393-3 (Version None)
Quarter: 2010Q1

REPORT INFORMATION
  Report Type: 
  Country: None (occurrence: None)
  Receive Date: 20100209
  Receipt Date: 20100128
  Transmission Date: 20100710
  Serious: Yes (Hospitalization)
  Sender: FDA-Public Use
  Company Number: US-BIOGENIDEC-2010BI001865

PATIENT
  Age: 46 Year
  Sex: Female
  Weight: 57 kg

DRUGS (10)
  1. TYSABRI [Suspect]
     Indication: MULTIPLE SCLEROSIS
     Route: 042
     Dates: start: 20080205, end: 20091229
  2. ADDERALL 30 [Concomitant]
     Indication: FATIGUE
  3. BACLOFEN [Concomitant]
     Indication: MUSCLE SPASTICITY
  4. DETROL LA [Concomitant]
     Indication: URINARY INCONTINENCE
  5. DETROL LA [Concomitant]
     Indication: MICTURITION URGENCY
  6. DETROL LA [Concomitant]
     Indication: POLLAKIURIA
  7. KLONOPIN [Concomitant]
     Indication: DRUG USE FOR UNKNOWN INDICATION
  8. LEXAPRO [Concomitant]
     Indication: DEPRESSION
  9. NEURONTIN [Concomitant]
     Indication: DRUG USE FOR UNKNOWN INDICATION
  10. REQUIP [Concomitant]
     Indication: DRUG USE FOR UNKNOWN INDICATION

REACTIONS (2)
  - CREPITATIONS [None]
  - PROGRESSIVE MULTIFOCAL LEUKOENCEPHALOPATHY [None]
